FAERS Safety Report 8406362-2 (Version None)
Quarter: 2012Q2

REPORT INFORMATION
  Report Type: 
  Country: None (occurrence: None)
  Receive Date: 20120604
  Receipt Date: 20120531
  Transmission Date: 20120825
  Serious: Yes (Other)
  Sender: FDA-Public Use
  Company Number: PHHY2012NO019772

PATIENT
  Age: 67 Year
  Sex: Male

DRUGS (2)
  1. ZOLEDRONIC ACID [Suspect]
     Indication: METASTASES TO BONE
  2. SUNITINIB MALATE [Suspect]
     Indication: RENAL CANCER METASTATIC
     Dosage: 50 MG, DAILY FRO FOUR WEEKS WITH A TWO-WEEK BREAK BETWEEN TREATMENTS

REACTIONS (4)
  - MUCOSAL HAEMORRHAGE [None]
  - OSTEONECROSIS OF JAW [None]
  - EXPOSED BONE IN JAW [None]
  - ORAL PAIN [None]
